FAERS Safety Report 4973031-0 (Version None)
Quarter: 2006Q2

REPORT INFORMATION
  Report Type: 
  Country: None (occurrence: None)
  Receive Date: 20060414
  Receipt Date: 20060127
  Transmission Date: 20061013
  Serious: Yes (Disabling)
  Sender: FDA-Public Use
  Company Number: 2006CG00202

PATIENT
  Age: 25558 Day
  Sex: Male
  Weight: 76 kg

DRUGS (4)
  1. CRESTOR [Suspect]
     Indication: HYPERCHOLESTEROLAEMIA
     Route: 048
     Dates: start: 20051201
  2. CRESTOR [Suspect]
     Route: 048
  3. MEDIATOR [Concomitant]
  4. OLMETEC [Concomitant]

REACTIONS (1)
  - EPICONDYLITIS [None]
